FAERS Safety Report 10876475 (Version 1)
Quarter: 2015Q1

REPORT INFORMATION
  Report Type: Spontaneous
  Country: US (occurrence: US)
  Receive Date: 20150301
  Receipt Date: 20150301
  Transmission Date: 20150721
  Serious: No
  Sender: FDA-Public Use
  Company Number: US-ASTRAZENECA-2015SE15489

PATIENT
  Age: 67 Year
  Sex: Female
  Weight: 77.1 kg

DRUGS (4)
  1. SYMBICORT [Suspect]
     Active Substance: BUDESONIDE\FORMOTEROL FUMARATE DIHYDRATE
     Indication: BRONCHITIS CHRONIC
     Dosage: 160/4.5 2 PUFFS BID
     Route: 055
     Dates: start: 2012
  2. SYMBICORT [Suspect]
     Active Substance: BUDESONIDE\FORMOTEROL FUMARATE DIHYDRATE
     Indication: CHRONIC OBSTRUCTIVE PULMONARY DISEASE
     Dosage: 160/4.5 2 PUFFS BID
     Route: 055
     Dates: start: 2012
  3. SYMBICORT [Suspect]
     Active Substance: BUDESONIDE\FORMOTEROL FUMARATE DIHYDRATE
     Indication: ASTHMA
     Dosage: 160/4.5 2 PUFFS BID
     Route: 055
     Dates: start: 2012
  4. ALBUTEROL SULFATE. [Concomitant]
     Active Substance: ALBUTEROL SULFATE
     Dosage: 0.083% WAS 2.5MG 3 TO 4 TIMES DAILY PRN VIA NEBULIER MACHINE
     Route: 055

REACTIONS (6)
  - Dyspnoea [Unknown]
  - Amnesia [Unknown]
  - Bronchitis [Recovered/Resolved]
  - Pneumonia [Unknown]
  - Dementia [Unknown]
  - Drug ineffective [Unknown]

NARRATIVE: CASE EVENT DATE: 2014
